FAERS Safety Report 25417719 (Version 1)
Quarter: 2025Q2

REPORT INFORMATION
  Report Type: Spontaneous
  Country: US (occurrence: None)
  Receive Date: 20250609
  Receipt Date: 20250609
  Transmission Date: 20250717
  Serious: No
  Sender: FDA-CTU
  Company Number: None

PATIENT
  Age: 62 Year
  Sex: Female
  Weight: 60.5 kg

DRUGS (1)
  1. GAMUNEX-C [Suspect]
     Active Substance: HUMAN IMMUNOGLOBULIN G
     Indication: Autoimmune encephalopathy
     Dates: start: 20241105, end: 20241110

REACTIONS (7)
  - Autoimmune haemolytic anaemia [None]
  - Infusion related reaction [None]
  - Pyrexia [None]
  - Leukocytosis [None]
  - Chills [None]
  - Tremor [None]
  - Product quality issue [None]

NARRATIVE: CASE EVENT DATE: 20241113
